FAERS Safety Report 16012094 (Version 1)
Quarter: 2019Q1

REPORT INFORMATION
  Report Type: Spontaneous
  Country: US (occurrence: US)
  Receive Date: 20190227
  Receipt Date: 20190227
  Transmission Date: 20190418
  Serious: No
  Sender: FDA-Public Use
  Company Number: US-TEVA-2019-US-1006661

PATIENT
  Sex: Female

DRUGS (1)
  1. PREDNISONE ACTAVIS [Suspect]
     Active Substance: PREDNISONE
     Route: 065

REACTIONS (4)
  - Product taste abnormal [Unknown]
  - Adverse event [Unknown]
  - International normalised ratio increased [Unknown]
  - Wrong technique in product usage process [Unknown]
